FAERS Safety Report 9030819 (Version 1)
Quarter: 2013Q1

REPORT INFORMATION
  Report Type: Spontaneous
  Country: US (occurrence: US)
  Receive Date: 20130123
  Receipt Date: 20130123
  Transmission Date: 20140127
  Serious: Yes (Hospitalization)
  Sender: FDA-Public Use
  Company Number: US-ROCHE-1181180

PATIENT
  Sex: Male

DRUGS (8)
  1. XOLAIR [Suspect]
     Indication: ASTHMA
     Route: 065
  2. AZMACORT [Suspect]
     Indication: ASTHMA
     Route: 065
  3. PULMICORT [Suspect]
     Indication: ASTHMA
     Route: 065
  4. SPIRIVA [Suspect]
     Indication: PRODUCT USED FOR UNKNOWN INDICATION
     Route: 065
  5. ALBUTEROL [Suspect]
     Indication: ASTHMA
     Route: 065
  6. ALBUTEROL [Suspect]
     Route: 065
  7. ADVAIR [Suspect]
     Indication: ASTHMA
     Route: 065
  8. PREDNISONE [Suspect]
     Indication: ASTHMA
     Route: 065

REACTIONS (1)
  - Dyspnoea [Unknown]
